FAERS Safety Report 20695977 (Version 1)
Quarter: 2022Q2

REPORT INFORMATION
  Report Type: Spontaneous
  Country: GB (occurrence: None)
  Receive Date: 20220411
  Receipt Date: 20220411
  Transmission Date: 20220721
  Serious: Yes (Other)
  Sender: FDA-Public Use
  Company Number: 2022A139143

PATIENT
  Age: 68 Year

DRUGS (9)
  1. FULVESTRANT [Suspect]
     Active Substance: FULVESTRANT
     Indication: Breast cancer
     Route: 065
     Dates: start: 202101
  2. FULVESTRANT [Suspect]
     Active Substance: FULVESTRANT
     Indication: Breast cancer
     Route: 065
     Dates: start: 202101
  3. FULVESTRANT [Suspect]
     Active Substance: FULVESTRANT
     Indication: Breast cancer
     Route: 065
     Dates: start: 202101
  4. TAMOXIFEN [Suspect]
     Active Substance: TAMOXIFEN
     Indication: Breast cancer
     Route: 065
  5. ABEMACICLIB [Suspect]
     Active Substance: ABEMACICLIB
     Indication: Breast cancer
     Route: 065
     Dates: start: 202101
  6. ABEMACICLIB [Suspect]
     Active Substance: ABEMACICLIB
     Indication: Breast cancer
     Route: 065
     Dates: start: 202104
  7. LETROZOLE [Suspect]
     Active Substance: LETROZOLE
     Indication: Breast cancer
     Route: 065
  8. PALBOCICLIB [Suspect]
     Active Substance: PALBOCICLIB
     Indication: Breast cancer
     Route: 065
  9. RIBOCICLIB [Suspect]
     Active Substance: RIBOCICLIB
     Indication: Breast cancer metastatic
     Dosage: 600 MG, QD (3WEEKS ON, 1 WEEK)
     Route: 065

REACTIONS (16)
  - Metastases to bone [Unknown]
  - Metastases to lung [Unknown]
  - Dry eye [Unknown]
  - Dyspepsia [Unknown]
  - Insomnia [Unknown]
  - Hypoaesthesia [Unknown]
  - Mucosal toxicity [Unknown]
  - Lacrimation increased [Unknown]
  - Diarrhoea [Unknown]
  - Fatigue [Unknown]
  - Pruritus [Unknown]
  - Arthralgia [Unknown]
  - Skin toxicity [Unknown]
  - Hepatotoxicity [Unknown]
  - Rash [Unknown]
  - Drug tolerance decreased [Unknown]
